FAERS Safety Report 6716940-4 (Version None)
Quarter: 2010Q2

REPORT INFORMATION
  Report Type: 
  Country: None (occurrence: None)
  Receive Date: 20100506
  Receipt Date: 20100506
  Transmission Date: 20101027
  Serious: Yes (Other)
  Sender: FDA-Public Use
  Company Number: None

PATIENT
  Age: 84 Year
  Sex: Female
  Weight: 72.5755 kg

DRUGS (4)
  1. ONGLYZA [Suspect]
     Indication: DIABETES MELLITUS
     Dosage: 5 MG ONCE (1) ORAL
     Route: 048
     Dates: start: 20100413
  2. LIPITOR [Concomitant]
  3. RAMIPRIL [Concomitant]
  4. PRANDIN [Concomitant]

REACTIONS (9)
  - ARTHRALGIA [None]
  - EYE HAEMORRHAGE [None]
  - FEELING ABNORMAL [None]
  - HEADACHE [None]
  - LIMB DISCOMFORT [None]
  - NEEDLE ISSUE [None]
  - OEDEMA PERIPHERAL [None]
  - PAIN [None]
  - SKIN HYPERTROPHY [None]
